FAERS Safety Report 10606761 (Version 1)
Quarter: 2014Q4

REPORT INFORMATION
  Report Type: Spontaneous
  Country: GB (occurrence: GB)
  Receive Date: 20141125
  Receipt Date: 20141125
  Transmission Date: 20150529
  Serious: Yes (Other)
  Sender: FDA-Public Use
  Company Number: GB-JNJFOC-20141111945

PATIENT
  Age: 67 Year
  Sex: Male
  Weight: 95 kg

DRUGS (7)
  1. JANUMET [Concomitant]
     Active Substance: METFORMIN HYDROCHLORIDE\SITAGLIPTIN PHOSPHATE
     Route: 065
  2. XARELTO [Suspect]
     Active Substance: RIVAROXABAN
     Indication: CARDIOVASCULAR EVENT PROPHYLAXIS
     Route: 048
     Dates: start: 20141027
  3. XARELTO [Suspect]
     Active Substance: RIVAROXABAN
     Indication: HYPERTROPHIC CARDIOMYOPATHY
     Route: 048
     Dates: start: 20141027
  4. AMIODARONE [Concomitant]
     Active Substance: AMIODARONE
     Route: 065
  5. ATORVASTATIN [Concomitant]
     Active Substance: ATORVASTATIN
     Route: 065
  6. CLOPIDOGREL [Concomitant]
     Active Substance: CLOPIDOGREL BISULFATE
     Route: 065
  7. VERAPAMIL [Concomitant]
     Active Substance: VERAPAMIL HYDROCHLORIDE
     Route: 065

REACTIONS (3)
  - Haemoptysis [Recovering/Resolving]
  - Headache [Recovering/Resolving]
  - Malaise [Unknown]

NARRATIVE: CASE EVENT DATE: 20141028
